FAERS Safety Report 18756715 (Version 2)
Quarter: 2021Q1

REPORT INFORMATION
  Report Type: Report from Study
  Country: BR (occurrence: BR)
  Receive Date: 20210119
  Receipt Date: 20210303
  Transmission Date: 20210419
  Serious: No
  Sender: FDA-Public Use
  Company Number: BR-AMGEN-BRASL2021007726

PATIENT
  Age: 68 Year
  Sex: Male

DRUGS (1)
  1. VECTIBIX [Suspect]
     Active Substance: PANITUMUMAB
     Indication: COLON CANCER METASTATIC
     Dosage: UNK UNK, Q2WK (EVERY 14 DAYS)
     Route: 065
     Dates: start: 202011

REACTIONS (7)
  - Wound [Not Recovered/Not Resolved]
  - Acne [Recovering/Resolving]
  - Throat irritation [Not Recovered/Not Resolved]
  - Skin haemorrhage [Recovering/Resolving]
  - Constipation [Unknown]
  - Oral herpes [Recovering/Resolving]
  - Aphthous ulcer [Not Recovered/Not Resolved]

NARRATIVE: CASE EVENT DATE: 202011
